FAERS Safety Report 10502616 (Version 1)
Quarter: 2014Q4

REPORT INFORMATION
  Report Type: Spontaneous
  Country: US (occurrence: None)
  Receive Date: 20141003
  Receipt Date: 20141003
  Transmission Date: 20150528
  Serious: Yes (Hospitalization)
  Sender: FDA-Public Use
  Company Number: IPC201409-000490

PATIENT
  Age: 31 Year
  Sex: Female

DRUGS (5)
  1. ZIPRASIDONE (ZIPRASIDONE) (ZIPRASIDONE) [Suspect]
     Active Substance: ZIPRASIDONE
     Dosage: STOPPED
     Route: 048
  2. TRAZODONE [Suspect]
     Active Substance: TRAZODONE HYDROCHLORIDE
     Dosage: STOPPED
     Route: 048
  3. CIPROFLOXACIN (CIPROFLOXACIN) (CIPROFLOXACIN) [Suspect]
     Active Substance: CIPROFLOXACIN
     Dosage: SINGLE DOSE, 4 D
     Route: 048
  4. FUROSEMIDE (FUROSEMIDE) (FUROSEMIDE) [Suspect]
     Active Substance: FUROSEMIDE
     Indication: CARDIAC FAILURE CONGESTIVE
     Dosage: PER DAY
     Route: 042
  5. HALOPERIDOL (HALOPERIDOL) (HALOPERIDOL) [Suspect]
     Active Substance: HALOPERIDOL
     Indication: AGITATION
     Route: 030

REACTIONS (4)
  - Off label use [None]
  - Torsade de pointes [None]
  - Mental status changes [None]
  - Respiratory acidosis [None]
